FAERS Safety Report 17967415 (Version 1)
Quarter: 2020Q2

REPORT INFORMATION
  Report Type: Spontaneous
  Country: US (occurrence: US)
  Receive Date: 20200630
  Receipt Date: 20200630
  Transmission Date: 20200714
  Serious: No
  Sender: FDA-Public Use
  Company Number: None

PATIENT
  Age: 63 Year
  Sex: Male

DRUGS (1)
  1. STIVARGA [Suspect]
     Active Substance: REGORAFENIB
     Indication: COLORECTAL CANCER
     Dosage: ?          OTHER FREQUENCY:EVERY 21 DAY TITRA;?
     Route: 048
     Dates: start: 20200612, end: 20200618

REACTIONS (5)
  - Drug intolerance [None]
  - Bedridden [None]
  - Fatigue [None]
  - Nausea [None]
  - Paraesthesia oral [None]

NARRATIVE: CASE EVENT DATE: 20200612
